FAERS Safety Report 18796580 (Version 1)
Quarter: 2021Q1

REPORT INFORMATION
  Report Type: Report from Study
  Country: None (occurrence: CA)
  Receive Date: 20210128
  Receipt Date: 20210128
  Transmission Date: 20210419
  Serious: Yes (Hospitalization)
  Sender: FDA-Public Use
  Company Number: CA-ABBVIE-20K-028-3701625-00

PATIENT
  Sex: Female
  Weight: 69.92 kg

DRUGS (2)
  1. HUMIRA [Suspect]
     Active Substance: ADALIMUMAB
     Indication: CROHN^S DISEASE
     Route: 058
     Dates: start: 20160518, end: 202012
  2. HUMIRA [Suspect]
     Active Substance: ADALIMUMAB
     Route: 058
     Dates: start: 20201217

REACTIONS (12)
  - Nausea [Recovered/Resolved]
  - Gastrointestinal stoma output decreased [Unknown]
  - Flatulence [Not Recovered/Not Resolved]
  - Crohn^s disease [Not Recovered/Not Resolved]
  - Gastrointestinal stoma complication [Not Recovered/Not Resolved]
  - Food intolerance [Not Recovered/Not Resolved]
  - Nausea [Unknown]
  - Mental impairment [Unknown]
  - Cystitis [Unknown]
  - Intestinal obstruction [Recovered/Resolved]
  - Vomiting [Recovered/Resolved]
  - Gastrointestinal wall thickening [Recovered/Resolved]

NARRATIVE: CASE EVENT DATE: 2020
